FAERS Safety Report 9731826 (Version 1)
Quarter: 2013Q4

REPORT INFORMATION
  Report Type: Report from Study
  Country: JP (occurrence: JP)
  Receive Date: 20131204
  Receipt Date: 20131204
  Transmission Date: 20140711
  Serious: No
  Sender: FDA-Public Use
  Company Number: JP-JNJFOC-20131201526

PATIENT
  Age: 35 Year
  Sex: Male
  Weight: 115 kg

DRUGS (8)
  1. STELARA [Suspect]
     Indication: PSORIASIS
     Route: 058
     Dates: start: 20120921
  2. STELARA [Suspect]
     Indication: PSORIASIS
     Route: 058
     Dates: start: 20111226, end: 20111226
  3. STELARA [Suspect]
     Indication: PSORIASIS
     Route: 058
     Dates: start: 20120204, end: 20120204
  4. ISCOTIN [Suspect]
     Indication: PROPHYLAXIS
     Route: 048
     Dates: start: 20120921
  5. ISCOTIN [Suspect]
     Indication: PROPHYLAXIS
     Route: 048
     Dates: start: 20111205, end: 20120421
  6. PYDOXAL [Concomitant]
     Indication: PROPHYLAXIS
     Route: 048
     Dates: start: 20111205, end: 20120421
  7. MYSER [Concomitant]
     Indication: PSORIASIS
     Route: 065
     Dates: start: 20111128, end: 20120204
  8. LIDOMEX [Concomitant]
     Indication: PSORIASIS
     Route: 065
     Dates: start: 20111128, end: 20120204

REACTIONS (1)
  - Hepatic enzyme increased [Recovering/Resolving]
